FAERS Safety Report 11837734 (Version 1)
Quarter: 2015Q4

REPORT INFORMATION
  Report Type: Spontaneous
  Country: US (occurrence: US)
  Receive Date: 20151215
  Receipt Date: 20151215
  Transmission Date: 20160305
  Serious: No
  Sender: FDA-Public Use
  Company Number: US-TEVA-617084USA

PATIENT
  Sex: Female

DRUGS (3)
  1. MODAFINIL. [Suspect]
     Active Substance: MODAFINIL
     Route: 065
  2. PROVIGIL [Suspect]
     Active Substance: MODAFINIL
     Route: 065
  3. PROVIGIL [Suspect]
     Active Substance: MODAFINIL
     Route: 065

REACTIONS (2)
  - Drug ineffective [Unknown]
  - Product substitution issue [Unknown]
